FAERS Safety Report 13738553 (Version 1)
Quarter: 2017Q3

REPORT INFORMATION
  Report Type: Report from Study
  Country: US (occurrence: US)
  Receive Date: 20170710
  Receipt Date: 20170710
  Transmission Date: 20171127
  Serious: No
  Sender: FDA-Public Use
  Company Number: US-SAOL THERAPEUTICS-2017SAO00184

PATIENT
  Age: 67 Year
  Sex: Male

DRUGS (4)
  1. BUPIVACAINE. [Suspect]
     Active Substance: BUPIVACAINE
     Dosage: 5.630 MG, \DAY
     Route: 037
     Dates: start: 20150408
  2. COMPOUNDED BACLOFEN [Suspect]
     Active Substance: BACLOFEN
     Dosage: 75.07 ?G, \DAY
     Route: 037
     Dates: start: 20150408
  3. DILAUDID [Suspect]
     Active Substance: HYDROMORPHONE HYDROCHLORIDE
     Dosage: 0.7507 MG, \DAY
     Route: 037
     Dates: start: 20150408
  4. CLONIDINE. [Suspect]
     Active Substance: CLONIDINE
     Dosage: 93.84 ?G, \DAY
     Route: 037
     Dates: start: 20150408

REACTIONS (1)
  - Implant site pain [Recovered/Resolved]

NARRATIVE: CASE EVENT DATE: 20150511
